FAERS Safety Report 7635071-2 (Version None)
Quarter: 2011Q3

REPORT INFORMATION
  Report Type: 
  Country: None (occurrence: None)
  Receive Date: 20110718
  Receipt Date: 20110708
  Transmission Date: 20111222
  Serious: Yes (Other)
  Sender: FDA-Public Use
  Company Number: GB-ACCORD-007238

PATIENT
  Age: 56 Year
  Sex: Female

DRUGS (6)
  1. SIMVASTATIN [Suspect]
     Indication: PRODUCT USED FOR UNKNOWN INDICATION
     Dosage: 40.00-MG-
     Dates: start: 20051228
  2. METFORMIN HCL [Concomitant]
  3. FENOFIBRATE [Concomitant]
  4. PRAVASTATIN [Concomitant]
  5. ATORVASTATIN [Suspect]
     Indication: PRODUCT USED FOR UNKNOWN INDICATION
     Dosage: 10.00-MG-
     Dates: start: 20050505
  6. ROSUVASTATIN [Concomitant]

REACTIONS (2)
  - APOLIPOPROTEIN DECREASED [None]
  - METABOLIC SYNDROME [None]
